FAERS Safety Report 6726009-0 (Version None)
Quarter: 2010Q2

REPORT INFORMATION
  Report Type: 
  Country: None (occurrence: None)
  Receive Date: 20100512
  Receipt Date: 20100427
  Transmission Date: 20101027
  Serious: Yes (Other)
  Sender: FDA-Public Use
  Company Number: 2010SCPR000610

PATIENT
  Age: 48 Year
  Sex: Female

DRUGS (1)
  1. METHYLPREDNISOLONE [Suspect]
     Indication: MULTIPLE SCLEROSIS RELAPSE
     Dosage: INTRAVENOUS
     Route: 042

REACTIONS (5)
  - CEREBELLAR SYNDROME [None]
  - DEMYELINATION [None]
  - HEPATITIS ACUTE [None]
  - OPTIC ATROPHY [None]
  - SENSORY DISTURBANCE [None]
